FAERS Safety Report 5323301-1 (Version None)
Quarter: 2007Q2

REPORT INFORMATION
  Report Type: 
  Country: None (occurrence: None)
  Receive Date: 20070221
  Receipt Date: 20060202
  Transmission Date: 20071010
  Serious: Yes (Other)
  Sender: FDA-Public Use
  Company Number: BDI-004590

PATIENT
  Sex: Female

DRUGS (1)
  1. ISOVUE-300 [Suspect]
     Indication: COMPUTERISED TOMOGRAM
     Dosage: 150 ML ONCE IV
     Route: 042
     Dates: start: 20021024, end: 20021024

REACTIONS (2)
  - BRONCHOSPASM [None]
  - PANIC ATTACK [None]
